FAERS Safety Report 7813272-8 (Version None)
Quarter: 2011Q4

REPORT INFORMATION
  Report Type: 
  Country: None (occurrence: None)
  Receive Date: 20111013
  Receipt Date: 20110930
  Transmission Date: 20120403
  Serious: Yes (Hospitalization)
  Sender: FDA-Public Use
  Company Number: US-ELI_LILLY_AND_COMPANY-US201107000763

PATIENT
  Sex: Female

DRUGS (2)
  1. FORTEO [Suspect]
     Indication: OSTEOPOROSIS
     Dosage: 20 UG, QD
     Route: 065
     Dates: start: 20110620
  2. FORTEO [Suspect]
     Dosage: 20 UG, QD
     Route: 065

REACTIONS (3)
  - ASTHENIA [None]
  - HOSPITALISATION [None]
  - MUSCLE SPASMS [None]
